FAERS Safety Report 9982623 (Version 1)
Quarter: 2014Q1

REPORT INFORMATION
  Report Type: Report from Study
  Country: US (occurrence: US)
  Receive Date: 20140307
  Receipt Date: 20140307
  Transmission Date: 20141002
  Serious: No
  Sender: FDA-Public Use
  Company Number: US-ABBVIE-13P-163-1175936-00

PATIENT
  Age: 44 Year
  Sex: Male
  Weight: 115.77 kg

DRUGS (9)
  1. HUMIRA [Suspect]
     Indication: CROHN^S DISEASE
     Dates: start: 20130307
  2. LITHIUM [Concomitant]
     Indication: DEPRESSION
  3. PROZAC [Concomitant]
     Indication: DEPRESSION
  4. EFFEXOR [Concomitant]
     Indication: DEPRESSION
  5. DEPAKOTE [Concomitant]
     Indication: DEPRESSION
  6. COUMADIN [Concomitant]
     Indication: PROTEIN S DEFICIENCY
  7. SIMVASTATIN [Concomitant]
     Indication: BLOOD CHOLESTEROL INCREASED
  8. SYNTHROID [Concomitant]
     Indication: THYROID DISORDER
  9. OMEPRAZOLE [Concomitant]
     Indication: GASTROOESOPHAGEAL REFLUX DISEASE

REACTIONS (1)
  - Weight increased [Not Recovered/Not Resolved]
